FAERS Safety Report 16507726 (Version 4)
Quarter: 2019Q3

REPORT INFORMATION
  Report Type: Report from Study
  Country: KR (occurrence: KR)
  Receive Date: 20190701
  Receipt Date: 20190816
  Transmission Date: 20191004
  Serious: Yes (Death, Hospitalization, Other)
  Sender: FDA-Public Use
  Company Number: KR-ASTELLAS-2019US026444

PATIENT
  Age: 74 Year
  Sex: Male
  Weight: 55 kg

DRUGS (4)
  1. ASP2215 [Suspect]
     Active Substance: GILTERITINIB
     Indication: ACUTE MYELOID LEUKAEMIA
     Route: 048
     Dates: start: 20190514, end: 20190804
  2. AS3156378 [Suspect]
     Active Substance: AZACITIDINE
     Indication: ACUTE MYELOID LEUKAEMIA
     Route: 058
     Dates: start: 20190514, end: 20190708
  3. AS3156378 [Suspect]
     Active Substance: AZACITIDINE
     Route: 058
     Dates: end: 20190725
  4. HYDROCORTISONE. [Concomitant]
     Active Substance: HYDROCORTISONE
     Indication: PROPHYLAXIS
     Dosage: 100 MG, OTHER (REPORTED AS 1)
     Route: 042
     Dates: start: 20190624, end: 20190624

REACTIONS (2)
  - Pneumonitis [Recovered/Resolved]
  - Pneumonia [Fatal]

NARRATIVE: CASE EVENT DATE: 20190624
